FAERS Safety Report 7821339-3 (Version None)
Quarter: 2011Q4

REPORT INFORMATION
  Report Type: 
  Country: None (occurrence: None)
  Receive Date: 20111018
  Receipt Date: 20110216
  Transmission Date: 20120403
  Serious: No
  Sender: FDA-Public Use
  Company Number: US-ASTRAZENECA-2011SE08939

PATIENT
  Age: 67 Year
  Sex: Female
  Weight: 86.2 kg

DRUGS (10)
  1. SYMBICORT [Suspect]
     Indication: ASTHMA
     Dosage: 160MCG, BID
     Route: 055
  2. LEVOXYL [Concomitant]
  3. VITAMIN D [Concomitant]
  4. CYANOCOBALAMIN [Concomitant]
  5. LISINOPRIL [Concomitant]
  6. LOVASTATIN [Concomitant]
  7. SYMBICORT [Suspect]
     Indication: CHRONIC OBSTRUCTIVE PULMONARY DISEASE
     Dosage: 160MCG, BID
     Route: 055
  8. ATENOLOL [Concomitant]
  9. PROZAC [Concomitant]
  10. METFORMIN HCL [Concomitant]

REACTIONS (2)
  - COUGH [None]
  - PRODUCTIVE COUGH [None]
